FAERS Safety Report 9613123 (Version 2)
Quarter: 2013Q4

REPORT INFORMATION
  Report Type: Spontaneous
  Country: US (occurrence: US)
  Receive Date: 20131010
  Receipt Date: 20131202
  Transmission Date: 20140711
  Serious: Yes (Hospitalization)
  Sender: FDA-Public Use
  Company Number: US-B.I. PHARMACEUTICALS,INC./RIDGEFIELD-2013-BI-31655BP

PATIENT
  Age: 63 Year
  Sex: Female
  Weight: 58 kg

DRUGS (10)
  1. COMBIVENT [Suspect]
     Indication: CHRONIC OBSTRUCTIVE PULMONARY DISEASE
     Dosage: STRENGTH: 20 MCG / 100 MCG; DAILY DOSE: 80 MCG / 400 MCG
     Route: 055
     Dates: start: 201305, end: 20130720
  2. COMBIVENT [Suspect]
     Dosage: STRENGTH: 20 MCG / 100 MCG; DAILY DOSE: 80 MCG / 400 MCG
     Route: 055
     Dates: start: 20130830
  3. CALCIUM [Concomitant]
     Dosage: 2000 MG
     Route: 048
  4. OMEGA 3 [Concomitant]
     Dosage: 4000 U
     Route: 048
  5. MULTIVIATMIN [Concomitant]
     Dosage: 1 ANZ
     Route: 048
  6. TRAZADONE [Concomitant]
     Indication: INSOMNIA
     Route: 048
     Dates: start: 1998
  7. ACYCLOVIR [Concomitant]
     Indication: HERPES ZOSTER
     Dosage: 500 MG
     Route: 048
     Dates: start: 1998
  8. VITAMIN D3 [Concomitant]
     Dosage: 4000 U
     Route: 048
  9. MAGNESIUM [Concomitant]
     Dosage: 500 MG
     Route: 048
  10. EFFEXOR [Concomitant]
     Indication: DEPRESSION
     Dosage: 50 MG
     Route: 048
     Dates: start: 2003

REACTIONS (2)
  - Pulmonary embolism [Not Recovered/Not Resolved]
  - Joint injury [Recovered/Resolved]
